FAERS Safety Report 4307094-2 (Version None)
Quarter: 2004Q1

REPORT INFORMATION
  Report Type: 
  Country: None (occurrence: None)
  Receive Date: 20040225
  Receipt Date: 20040211
  Transmission Date: 20041129
  Serious: Yes (Death, Other)
  Sender: FDA-Public Use
  Company Number: USA040259148

PATIENT
  Age: 67 Year
  Sex: Male
  Weight: 91 kg

DRUGS (1)
  1. HUMULIN-HUMAN INSULIN (RNDA) :30% REGULAR, 70% NPH (H [Suspect]
     Dates: start: 19970101, end: 20030313

REACTIONS (1)
  - LIVER DISORDER [None]
